FAERS Safety Report 16095974 (Version 1)
Quarter: 2019Q1

REPORT INFORMATION
  Report Type: Spontaneous
  Country: CA (occurrence: CA)
  Receive Date: 20190320
  Receipt Date: 20190320
  Transmission Date: 20190418
  Serious: Yes (Other)
  Sender: FDA-Public Use
  Company Number: CA-TEVA-2019-CA-1028862

PATIENT

DRUGS (1)
  1. ALERTEC [Suspect]
     Active Substance: MODAFINIL
     Route: 065

REACTIONS (1)
  - Coeliac disease [Unknown]
